FAERS Safety Report 16741603 (Version 2)
Quarter: 2020Q3

REPORT INFORMATION
  Report Type: Spontaneous
  Country: US (occurrence: US)
  Receive Date: 20190826
  Receipt Date: 20191009
  Transmission Date: 20201104
  Serious: Yes (Death, Hospitalization, Other)
  Sender: FDA-Public Use
  Company Number: US-009507513-1908USA007815

PATIENT
  Age: 74 Year
  Sex: Male
  Weight: 58.5 kg

DRUGS (7)
  1. LEVOTHYROXINE SODIUM. [Concomitant]
     Active Substance: LEVOTHYROXINE SODIUM
     Indication: HYPOTHYROIDISM
     Dosage: 0.1 MICROGRAM; ROUTE: GASTROINTESTINAL (G) TUBE
     Dates: start: 201610
  2. KEYTRUDA [Suspect]
     Active Substance: PEMBROLIZUMAB
     Dosage: 200 MILLIGRAM, ON DAY 1 (D1),  EVERY 21 DAYS (Q3W)
     Route: 042
     Dates: start: 20190611
  3. KEYTRUDA [Suspect]
     Active Substance: PEMBROLIZUMAB
     Dosage: 200 MILLIGRAM, ON DAY 1 (D1),  EVERY 21 DAYS (Q3W)
     Route: 042
     Dates: start: 20190730
  4. SEPHB4?HSA. [Suspect]
     Active Substance: SEPHB4-HSA
     Dosage: 10 MILLIGRAM/KILOGRAM, ON DAY 1 (D1), DAY 8 (D8), DAY 15 (D15), EVERY 21 DAYS (Q3W)
     Route: 042
     Dates: start: 20190611
  5. AMLODIPINE [Concomitant]
     Active Substance: AMLODIPINE BESYLATE
     Indication: HYPERTENSION
     Dosage: 0.1 MILLIGRAM DAILY; ROUTE: GASTROINTESTINAL (G) TUBE
     Dates: start: 20190709
  6. SEPHB4?HSA. [Suspect]
     Active Substance: SEPHB4-HSA
     Dosage: 10 MILLIGRAM/KILOGRAM, ON DAY 1 (D1), DAY 8 (D8), DAY 15 (D15), EVERY 21 DAYS (Q3W)
     Route: 042
     Dates: start: 20190730
  7. AMOXICILLIN (+) CLAVULANATE POTASSIUM [Concomitant]
     Active Substance: AMOXICILLIN\CLAVULANATE POTASSIUM
     Indication: INFECTION
     Dosage: UNK, BID X 7 DAYS; ROUTE: GASTROINTESTINAL (G) TUBE
     Dates: start: 20190709

REACTIONS (6)
  - Inappropriate schedule of product administration [Unknown]
  - Malignant neoplasm progression [Unknown]
  - Erythema [Unknown]
  - Tracheal haemorrhage [Fatal]
  - Swelling [Unknown]
  - Mouth haemorrhage [Unknown]

NARRATIVE: CASE EVENT DATE: 2019
